FAERS Safety Report 4525078-6 (Version None)
Quarter: 2004Q4

REPORT INFORMATION
  Report Type: 
  Country: None (occurrence: None)
  Receive Date: 20041116
  Receipt Date: 20040827
  Transmission Date: 20050328
  Serious: No
  Sender: FDA-Public Use
  Company Number: S04-USA-06137-01

PATIENT
  Age: 66 Year
  Sex: Male

DRUGS (11)
  1. NAMENDA [Suspect]
     Indication: DEMENTIA ALZHEIMER'S TYPE
     Dosage: 5 MG QD PO
     Route: 048
     Dates: start: 20040701, end: 20040701
  2. NAMENDA [Suspect]
     Indication: DEMENTIA ALZHEIMER'S TYPE
     Dosage: 5 MG BID PO
     Route: 048
     Dates: start: 20040701, end: 20040701
  3. NAMENDA [Suspect]
     Indication: DEMENTIA ALZHEIMER'S TYPE
     Dosage: 10 MG QD PO
     Route: 048
     Dates: start: 20040701, end: 20040701
  4. NAMENDA [Suspect]
     Indication: DEMENTIA ALZHEIMER'S TYPE
     Dosage: 5 MG QD PO
     Route: 048
     Dates: start: 20040701, end: 20040701
  5. NAMENDA [Suspect]
     Indication: DEMENTIA ALZHEIMER'S TYPE
     Dosage: 10 MG BID PO
     Route: 048
     Dates: start: 20040701, end: 20040824
  6. EXELON [Concomitant]
  7. DEPAKOTE [Concomitant]
  8. ZYPREXA [Concomitant]
  9. PAXIL [Concomitant]
  10. AXID [Concomitant]
  11. DIOVAN [Concomitant]

REACTIONS (4)
  - AGITATION [None]
  - DELIRIUM [None]
  - HYPERSOMNIA [None]
  - INCOHERENT [None]
